FAERS Safety Report 5262262-0 (Version None)
Quarter: 2007Q1

REPORT INFORMATION
  Report Type: 
  Country: None (occurrence: None)
  Receive Date: 20070308
  Receipt Date: 20070308
  Transmission Date: 20070707
  Serious: Yes (Hospitalization)
  Sender: FDA-Public Use
  Company Number: None

PATIENT
  Age: 58 Year
  Sex: Female
  Weight: 54.4316 kg

DRUGS (1)
  1. LEVAQUIN [Suspect]
     Indication: BRONCHITIS
     Dosage: 750 MG 1 DAILY PO
     Route: 048
     Dates: start: 20070225, end: 20070301

REACTIONS (8)
  - ABASIA [None]
  - ARTHRITIS [None]
  - IMMOBILE [None]
  - JOINT SWELLING [None]
  - PAIN [None]
  - PYREXIA [None]
  - SKIN WARM [None]
  - VITREOUS FLOATERS [None]
